FAERS Safety Report 5894478-4 (Version None)
Quarter: 2008Q3

REPORT INFORMATION
  Report Type: 
  Country: None (occurrence: None)
  Receive Date: 20080923
  Receipt Date: 20080923
  Transmission Date: 20090109
  Serious: Yes (Other)
  Sender: FDA-Public Use
  Company Number: None

PATIENT
  Age: 73 Year
  Sex: Male
  Weight: 88.905 kg

DRUGS (14)
  1. PANAFIL OINTMENT (HEALTH POINT) [Suspect]
     Indication: ISCHAEMIC ULCER
     Dosage: DAILY TO WOUND BED
     Dates: end: 20080503
  2. ALBUTEROL [Concomitant]
  3. ALLOPURINOL [Concomitant]
  4. ASPIRIN [Concomitant]
  5. CALCIUM [Concomitant]
  6. COLCHICINE [Concomitant]
  7. DIAZEPAM [Concomitant]
  8. FLUNISOLIDE [Concomitant]
  9. FUROSEMIDE [Concomitant]
  10. HYROXYSINE [Concomitant]
  11. IPRATOPIUM BROMIDE [Concomitant]
  12. MORPHINE [Concomitant]
  13. OXYCODONE HCL [Concomitant]
  14. SPIRONOLACTONE [Concomitant]

REACTIONS (8)
  - BLISTER [None]
  - BURNING SENSATION [None]
  - BURNS THIRD DEGREE [None]
  - NECROSIS [None]
  - PAIN [None]
  - SKIN DISCOMFORT [None]
  - SKIN IRRITATION [None]
  - WOUND COMPLICATION [None]
